FAERS Safety Report 7284799-5 (Version None)
Quarter: 2011Q1

REPORT INFORMATION
  Report Type: 
  Country: None (occurrence: None)
  Receive Date: 20110210
  Receipt Date: 20110207
  Transmission Date: 20110831
  Serious: Yes (Hospitalization, Other)
  Sender: FDA-Public Use
  Company Number: US-PFIZER INC-HQWYE648811MAY05

PATIENT
  Sex: Female
  Weight: 85 kg

DRUGS (3)
  1. TRAZODONE [Concomitant]
     Indication: DEPRESSION
     Dosage: UNK
     Dates: start: 20000101
  2. PREMARIN [Suspect]
     Indication: HORMONE REPLACEMENT THERAPY
     Dosage: 0.625 MG, UNK
     Route: 048
     Dates: start: 19900101, end: 20040101
  3. PREMARIN [Suspect]
     Indication: HYSTERECTOMY

REACTIONS (1)
  - OVARIAN CANCER METASTATIC [None]
